FAERS Safety Report 11589892 (Version 1)
Quarter: 2015Q4

REPORT INFORMATION
  Report Type: Spontaneous
  Country: PR (occurrence: PR)
  Receive Date: 20151002
  Receipt Date: 20151002
  Transmission Date: 20160304
  Serious: No
  Sender: FDA-Public Use
  Company Number: PR-BAXTER-2015BAX051329

PATIENT
  Age: 51 Year
  Sex: Female

DRUGS (11)
  1. 70% DEXTROSE INJECTION USP [Suspect]
     Active Substance: DEXTROSE
     Indication: PARENTERAL NUTRITION
     Dosage: 301.43
     Route: 042
     Dates: start: 20150911, end: 20150913
  2. STERILE WATER FOR INJECTION [Suspect]
     Active Substance: WATER
     Indication: PARENTERAL NUTRITION
     Dosage: 222.22
     Route: 042
     Dates: start: 20150911
  3. MAGNESIUM SULFATE. [Suspect]
     Active Substance: MAGNESIUM SULFATE
     Indication: PARENTERAL NUTRITION
     Dosage: 2.46
     Route: 042
     Dates: start: 20150911, end: 20150913
  4. CLINISOL [Suspect]
     Active Substance: ALANINE\ARGININE\ASPARTIC ACID\GLUTAMIC ACID\GLYCINE\HISTIDINE\ISOLEUCINE\LEUCINE\LYSINE\METHIONINE\PHENYLALANINE\PROLINE\SERINE\THREONINE\TRYPTOPHAN\TYROSINE\VALINE
     Indication: PARENTERAL NUTRITION
     Dosage: 666.67
     Route: 042
     Dates: start: 20150911, end: 20150913
  5. CA GLUCONATE [Suspect]
     Active Substance: CALCIUM GLUCONATE
     Indication: PARENTERAL NUTRITION
     Dosage: 12.51
     Route: 042
     Dates: start: 20150911, end: 20150913
  6. INTRALIPID [Suspect]
     Active Substance: EGG PHOSPHOLIPIDS\GLYCERIN\SOYBEAN OIL
     Indication: PARENTERAL NUTRITION
     Dosage: 161
     Route: 042
     Dates: start: 20150911, end: 20150913
  7. ADULT INFUVITE MULTIPLE VITAMINS FOR INFUSION [Suspect]
     Active Substance: .ALPHA.-TOCOPHEROL ACETATE\ASCORBIC ACID\BIOTIN\CHOLECALCIFEROL\CYANOCOBALAMIN\DEXPANTHENOL\FOLIC ACID\NIACINAMIDE\PHYTONADIONE\PYRIDOXINE HYDROCHLORIDE\RIBOFLAVIN 5^-PHOSPHATE SODIUM\THIAMINE HYDROCHLORIDE\VITAMIN A PALMITATE
     Indication: PARENTERAL NUTRITION
     Dosage: 10
     Route: 042
     Dates: start: 20150911, end: 20150913
  8. HUMULIN R [Suspect]
     Active Substance: INSULIN HUMAN
     Indication: PARENTERAL NUTRITION
     Dosage: 0.30
     Route: 042
     Dates: start: 20150911, end: 20150913
  9. POTASSIUM PHOSPHATE [Suspect]
     Active Substance: POTASSIUM PHOSPHATE
     Indication: PARENTERAL NUTRITION
     Dosage: 7
     Route: 042
     Dates: start: 20150911, end: 20150913
  10. SODIUM ACETATE. [Suspect]
     Active Substance: SODIUM ACETATE
     Indication: PARENTERAL NUTRITION
     Dosage: 12.63
     Route: 042
     Dates: start: 20150911, end: 20150913
  11. SODIUM CHLORIDE. [Suspect]
     Active Substance: SODIUM CHLORIDE
     Indication: PARENTERAL NUTRITION
     Dosage: 20.18
     Route: 042
     Dates: start: 20150911, end: 20150913

REACTIONS (2)
  - No adverse event [Recovered/Resolved]
  - Incorrect dose administered [Recovered/Resolved]

NARRATIVE: CASE EVENT DATE: 20150911
